FAERS Safety Report 14278890 (Version 4)
Quarter: 2018Q1

REPORT INFORMATION
  Report Type: Report from Study
  Country: US (occurrence: US)
  Receive Date: 20171212
  Receipt Date: 20180111
  Transmission Date: 20180508
  Serious: Yes (Hospitalization)
  Sender: FDA-Public Use
  Company Number: US-PFIZER INC-2017515035

PATIENT
  Age: 61 Year
  Sex: Male
  Weight: 64 kg

DRUGS (8)
  1. PF-04449913 [Suspect]
     Active Substance: GLASDEGIB
     Dosage: 100 MG, 1X/DAILY
     Route: 048
     Dates: start: 20171130, end: 20171211
  2. TACROLIMUS. [Suspect]
     Active Substance: TACROLIMUS
     Dosage: 0.5 MG CAPSULE, 1 MG IN AM AND 1 MG IN PM
     Route: 048
     Dates: start: 20171206, end: 20171212
  3. TACROLIMUS. [Suspect]
     Active Substance: TACROLIMUS
     Indication: IMMUNOSUPPRESSION
     Dosage: 0.5 MG CAPSULE, 1.5 MG IN AM AND 1 MG IN PM
     Route: 048
     Dates: start: 20170913, end: 20171128
  4. TACROLIMUS. [Suspect]
     Active Substance: TACROLIMUS
     Dosage: 1.5 MG CAPSULE, DAILY
     Route: 048
     Dates: start: 20171129, end: 20171206
  5. TACROLIMUS. [Suspect]
     Active Substance: TACROLIMUS
     Dosage: 1 MG CAPSULE, DAILY
     Route: 048
     Dates: start: 20171128, end: 20171129
  6. TACROLIMUS. [Suspect]
     Active Substance: TACROLIMUS
     Dosage: 0.5 MG, 2X/DAY
     Route: 048
     Dates: start: 20171212, end: 20171218
  7. PROCHLORPERAZINE. [Concomitant]
     Active Substance: PROCHLORPERAZINE
     Indication: NAUSEA
     Dosage: 10 MG, Q6 HOURS
     Route: 048
     Dates: start: 20170926
  8. PF-04449913 [Suspect]
     Active Substance: GLASDEGIB
     Indication: ACUTE MYELOID LEUKAEMIA
     Dosage: 100 MG, 1X/DAILY
     Route: 048
     Dates: start: 20171017, end: 20171126

REACTIONS (2)
  - Nausea [Not Recovered/Not Resolved]
  - Acute kidney injury [Recovered/Resolved with Sequelae]

NARRATIVE: CASE EVENT DATE: 20171127
